FAERS Safety Report 22121549 (Version 3)
Quarter: 2023Q2

REPORT INFORMATION
  Report Type: Report from Study
  Country: US (occurrence: US)
  Receive Date: 20230321
  Receipt Date: 20230628
  Transmission Date: 20230722
  Serious: No
  Sender: FDA-Public Use
  Company Number: US-TAKEDA-2022TUS038542

PATIENT
  Age: 70 Year
  Sex: Female
  Weight: 95 kg

DRUGS (20)
  1. HUMAN IMMUNOGLOBULIN G [Suspect]
     Active Substance: HUMAN IMMUNOGLOBULIN G
     Indication: Immune system disorder
     Dosage: 20 GRAM, Q2WEEKS
     Route: 058
     Dates: start: 20220429
  2. HUMAN IMMUNOGLOBULIN G [Suspect]
     Active Substance: HUMAN IMMUNOGLOBULIN G
     Indication: Monoclonal gammopathy
     Dosage: 10 GRAM, 1/WEEK
     Route: 058
  3. HUMAN IMMUNOGLOBULIN G [Suspect]
     Active Substance: HUMAN IMMUNOGLOBULIN G
     Indication: Hypergammaglobulinaemia
  4. DIPHENHYDRAMINE [Concomitant]
     Active Substance: DIPHENHYDRAMINE
     Dosage: UNK
  5. PAROXETINE HYDROCHLORIDE [Concomitant]
     Active Substance: PAROXETINE HYDROCHLORIDE
     Dosage: UNK
  6. NEURONTIN [Concomitant]
     Active Substance: GABAPENTIN
     Dosage: UNK
  7. EPINEPHRINE [Concomitant]
     Active Substance: EPINEPHRINE
     Dosage: UNK
  8. BACTRIM [Concomitant]
     Active Substance: SULFAMETHOXAZOLE\TRIMETHOPRIM
     Dosage: UNK
  9. TYLENOL ARTHRITIS PAIN [Concomitant]
     Active Substance: ACETAMINOPHEN
     Dosage: UNK
  10. WIXELA INHUB [Concomitant]
     Active Substance: FLUTICASONE PROPIONATE\SALMETEROL XINAFOATE
     Dosage: UNK
  11. OMEPRAZOLE [Concomitant]
     Active Substance: OMEPRAZOLE
     Dosage: UNK
  12. ACETAMINOPHEN [Concomitant]
     Active Substance: ACETAMINOPHEN
     Dosage: UNK
  13. AMOXICILLIN [Concomitant]
     Active Substance: AMOXICILLIN
     Dosage: UNK
  14. PAXIL [Concomitant]
     Active Substance: PAROXETINE HYDROCHLORIDE
     Dosage: UNK
  15. LISINOPRIL [Concomitant]
     Active Substance: LISINOPRIL
     Dosage: UNK
  16. ALBUTEROL SULFATE [Concomitant]
     Active Substance: ALBUTEROL SULFATE
     Dosage: UNK
  17. PLAVIX [Concomitant]
     Active Substance: CLOPIDOGREL BISULFATE
     Dosage: UNK
  18. Lmx [Concomitant]
     Dosage: UNK
  19. CLONAZEPAM [Concomitant]
     Active Substance: CLONAZEPAM
     Dosage: UNK
  20. ALBUTEROL [Concomitant]
     Active Substance: ALBUTEROL
     Dosage: UNK

REACTIONS (18)
  - Illness [Unknown]
  - Infection [Unknown]
  - Bronchitis [Unknown]
  - COVID-19 [Unknown]
  - Iron deficiency [Unknown]
  - Restless legs syndrome [Unknown]
  - Renal disorder [Unknown]
  - Glomerular filtration rate decreased [Unknown]
  - Nasopharyngitis [Unknown]
  - Influenza [Unknown]
  - Rhinorrhoea [Unknown]
  - Malaise [Unknown]
  - Dyspnoea [Recovered/Resolved]
  - Headache [Not Recovered/Not Resolved]
  - Fatigue [Unknown]
  - Dizziness [Unknown]
  - Product dose omission issue [Unknown]
  - Inappropriate schedule of product administration [Unknown]

NARRATIVE: CASE EVENT DATE: 20220901
